FAERS Safety Report 7522408-8 (Version None)
Quarter: 2011Q2

REPORT INFORMATION
  Report Type: 
  Country: None (occurrence: None)
  Receive Date: 20110603
  Receipt Date: 20110525
  Transmission Date: 20111010
  Serious: Yes (Death, Other)
  Sender: FDA-Public Use
  Company Number: US-CELGENEUS-163-21880-11023058

PATIENT
  Sex: Female

DRUGS (13)
  1. REVLIMID [Suspect]
     Indication: MULTIPLE MYELOMA
     Dosage: 10 MILLIGRAM
     Route: 048
     Dates: start: 20110113, end: 20110421
  2. DEXAMETHASONE [Concomitant]
     Indication: DEHYDRATION
     Route: 065
  3. LUTEIN [Concomitant]
     Dosage: 20 MILLIGRAM
     Route: 048
  4. AREDIA [Concomitant]
     Dosage: 30 MILLIGRAM
     Route: 050
  5. FERROUS SULFATE TAB [Concomitant]
     Dosage: 50 MILLIGRAM
     Route: 048
  6. LEXAPRO [Concomitant]
     Route: 048
  7. ARANESP [Concomitant]
     Dosage: 150 MICROGRAM
     Route: 050
  8. MULTI-VITAMINS [Concomitant]
     Indication: DEHYDRATION
     Route: 065
  9. COLACE [Concomitant]
     Dosage: 50 MILLIGRAM
     Route: 048
  10. MEDICATION [Concomitant]
     Indication: HYPERTENSION
     Route: 065
  11. GARLIC [Concomitant]
     Route: 065
  12. LEVOTHYROXINE SODIUM [Concomitant]
     Dosage: 125 MICROGRAM
     Route: 048
  13. VELCADE [Concomitant]
     Route: 065

REACTIONS (3)
  - DEHYDRATION [None]
  - MULTIPLE MYELOMA [None]
  - FATIGUE [None]
